FAERS Safety Report 25997507 (Version 1)
Quarter: 2025Q4

REPORT INFORMATION
  Report Type: Report from Study
  Country: US (occurrence: US)
  Receive Date: 20251104
  Receipt Date: 20251104
  Transmission Date: 20260118
  Serious: Yes (Other)
  Sender: ABBVIE
  Company Number: US-ABBVIE-6526788

PATIENT
  Sex: Male

DRUGS (1)
  1. CREON [Suspect]
     Active Substance: PANCRELIPASE AMYLASE\PANCRELIPASE LIPASE\PANCRELIPASE PROTEASE
     Indication: Product used for unknown indication
     Route: 048
     Dates: start: 20230101

REACTIONS (6)
  - Neoplasm malignant [Unknown]
  - Malaise [Not Recovered/Not Resolved]
  - Laboratory test abnormal [Unknown]
  - Splenomegaly [Unknown]
  - Liver disorder [Unknown]
  - Pharyngeal operation [Unknown]
